FAERS Safety Report 18600585 (Version 1)
Quarter: 2020Q4

REPORT INFORMATION
  Report Type: Spontaneous
  Country: TW (occurrence: TW)
  Receive Date: 20201210
  Receipt Date: 20201210
  Transmission Date: 20210114
  Serious: Yes (Life-Threatening)
  Sender: FDA-Public Use
  Company Number: TW-FRESENIUS KABI-FK202012985

PATIENT
  Age: 52 Year
  Sex: Male

DRUGS (3)
  1. ROCURONIUMBROMID KABI 10 MG/ML [Suspect]
     Active Substance: ROCURONIUM BROMIDE
     Indication: GENERAL ANAESTHESIA
     Route: 042
     Dates: start: 20201123, end: 20201123
  2. THIAMYLAL SODIUM [Suspect]
     Active Substance: THIAMYLAL SODIUM
     Indication: GENERAL ANAESTHESIA
     Dosage: CITOSOL INJECTION 300 MG (THIAMYLAL SODIUM)
     Route: 042
     Dates: start: 20201123, end: 20201123
  3. FENTANYL. [Suspect]
     Active Substance: FENTANYL
     Indication: GENERAL ANAESTHESIA
     Dosage: FENTANYL INJECTION 0.05 MG/ML
     Route: 042
     Dates: start: 20201123, end: 20201123

REACTIONS (1)
  - Anaphylactic reaction [Recovered/Resolved]

NARRATIVE: CASE EVENT DATE: 20201123
